FAERS Safety Report 4993499-3 (Version None)
Quarter: 2006Q2

REPORT INFORMATION
  Report Type: 
  Country: None (occurrence: None)
  Receive Date: 20060505
  Receipt Date: 20060216
  Transmission Date: 20061013
  Serious: Yes (Death, Hospitalization)
  Sender: FDA-Public Use
  Company Number: DE-AMGEN-UK169503

PATIENT
  Sex: Male
  Weight: 60 kg

DRUGS (16)
  1. KEPIVANCE [Suspect]
     Indication: MUCOSAL INFLAMMATION
     Route: 042
     Dates: start: 20060101, end: 20060112
  2. FLUCONAZOLE [Concomitant]
     Route: 042
     Dates: start: 20060103, end: 20060119
  3. CO-TRIMOXAZOLE [Concomitant]
     Route: 042
     Dates: start: 20060110
  4. VALTREX [Concomitant]
     Route: 042
     Dates: start: 20060110, end: 20060129
  5. PIPERACILLIN [Concomitant]
     Route: 042
     Dates: start: 20060110, end: 20060128
  6. SANDIMMUNE [Concomitant]
     Route: 042
     Dates: start: 20060109, end: 20060129
  7. CYCLOPHOSPHAMIDE [Concomitant]
     Route: 042
     Dates: start: 20060106, end: 20060107
  8. METHOTREXATE [Concomitant]
     Route: 042
     Dates: start: 20060111, end: 20060115
  9. CASPOFUNGIN [Concomitant]
     Route: 042
     Dates: start: 20060115, end: 20060129
  10. AMBISOME [Concomitant]
     Route: 042
     Dates: start: 20060123, end: 20060129
  11. TARGOSID [Concomitant]
     Route: 042
     Dates: start: 20060116, end: 20060129
  12. CEFTAZIDIME [Concomitant]
     Route: 042
     Dates: start: 20060116, end: 20060123
  13. CIPROFLOXACIN [Concomitant]
     Route: 042
     Dates: start: 20060123, end: 20060128
  14. METRONIDAZOLE [Concomitant]
     Route: 042
     Dates: start: 20060118, end: 20060123
  15. PRIMAXIN [Concomitant]
     Route: 042
     Dates: start: 20060128, end: 20060129
  16. LINEZOLID [Concomitant]
     Route: 042
     Dates: start: 20060128, end: 20060129

REACTIONS (10)
  - ACUTE RESPIRATORY DISTRESS SYNDROME [None]
  - CAPILLARY LEAK SYNDROME [None]
  - CLOSTRIDIAL INFECTION [None]
  - FLUID RETENTION [None]
  - LUNG INFILTRATION [None]
  - LUNG INJURY [None]
  - MUCOSAL INFLAMMATION [None]
  - PNEUMONIA [None]
  - RESPIRATORY FAILURE [None]
  - WEIGHT INCREASED [None]
